FAERS Safety Report 18187581 (Version 4)
Quarter: 2020Q4

REPORT INFORMATION
  Report Type: Report from Study
  Country: CO (occurrence: CO)
  Receive Date: 20200824
  Receipt Date: 20201104
  Transmission Date: 20210113
  Serious: Yes (Hospitalization, Other)
  Sender: FDA-Public Use
  Company Number: NVSC2020CO230140

PATIENT
  Sex: Male
  Weight: 67 kg

DRUGS (2)
  1. JADENU [Suspect]
     Active Substance: DEFERASIROX
     Indication: APLASTIC ANAEMIA
     Dosage: 360 MG, Q12H (STARTED 3 MONTHS AGO (DOES NOT KNOW EXACT DATE)
     Route: 048
  2. HUMAN HEMIN [Concomitant]
     Indication: PORPHYRIA ACUTE
     Dosage: UNK (EVERY 8 DAYS)
     Route: 065

REACTIONS (6)
  - Thrombosis [Unknown]
  - Movement disorder [Recovered/Resolved]
  - Suture rupture [Unknown]
  - Inappropriate schedule of product administration [Unknown]
  - Ill-defined disorder [Recovered/Resolved]
  - Abdominal pain [Recovered/Resolved]
